FAERS Safety Report 5756149-4 (Version None)
Quarter: 2008Q2

REPORT INFORMATION
  Report Type: 
  Country: None (occurrence: None)
  Receive Date: 20080602
  Receipt Date: 20080520
  Transmission Date: 20081010
  Serious: Yes (Other)
  Sender: FDA-Public Use
  Company Number: CO-MERCK-0805COL00010

PATIENT
  Age: 11 Month
  Sex: Male

DRUGS (1)
  1. SINGULAIR [Suspect]
     Indication: BRONCHIOLITIS
     Route: 048
     Dates: start: 20080201, end: 20080517

REACTIONS (2)
  - OFF LABEL USE [None]
  - PARTIAL SEIZURES [None]
